FAERS Safety Report 9729289 (Version 1)
Quarter: 2013Q4

REPORT INFORMATION
  Report Type: Spontaneous
  Country: GB (occurrence: GB)
  Receive Date: 20131204
  Receipt Date: 20131204
  Transmission Date: 20140711
  Serious: Yes (Other)
  Sender: FDA-Public Use
  Company Number: GB-TEVA-447450ISR

PATIENT
  Sex: 0

DRUGS (10)
  1. MODAFINIL [Suspect]
     Indication: NARCOLEPSY
  2. MODAFINIL [Suspect]
     Indication: FATIGUE
  3. MODAFINIL [Suspect]
     Indication: MULTIPLE SCLEROSIS
  4. MODAFINIL [Suspect]
     Indication: SLEEP APNOEA SYNDROME
  5. MODAFINIL [Suspect]
     Indication: SOMNOLENCE
  6. MODAFINIL [Suspect]
     Indication: SEDATION
  7. MODAFINIL [Suspect]
     Indication: CHRONIC FATIGUE SYNDROME
  8. MODAFINIL [Suspect]
     Indication: PARKINSON^S DISEASE
  9. MODAFINIL [Suspect]
     Indication: INSOMNIA
  10. MODAFINIL [Suspect]
     Indication: CIRCADIAN RHYTHM SLEEP DISORDER

REACTIONS (36)
  - Multiple sclerosis relapse [Unknown]
  - Cardiac failure [Unknown]
  - Diabetes mellitus [Unknown]
  - Headache [Unknown]
  - Dizziness [Unknown]
  - Visual impairment [Unknown]
  - Diarrhoea [Unknown]
  - Nausea [Unknown]
  - Vomiting [Unknown]
  - Abdominal pain [Unknown]
  - Hypertension [Unknown]
  - Somnolence [Unknown]
  - Sedation [Unknown]
  - Insomnia [Unknown]
  - Agitation [Unknown]
  - Anxiety [Unknown]
  - Euphoric mood [Unknown]
  - Psychomotor hyperactivity [Unknown]
  - Malaise [Unknown]
  - Palpitations [Unknown]
  - Muscular weakness [Unknown]
  - Urinary tract infection [Unknown]
  - Abnormal dreams [Unknown]
  - Dyspnoea [Unknown]
  - Skin infection [Unknown]
  - Anaemia [Unknown]
  - Decreased appetite [Unknown]
  - Dermatitis [Unknown]
  - Gout [Unknown]
  - Chest pain [Unknown]
  - Tremor [Unknown]
  - Arrhythmia [Unknown]
  - Tachycardia [Unknown]
  - Psychotic disorder [Unknown]
  - Overdose [Unknown]
  - Off label use [Unknown]
